FAERS Safety Report 16946576 (Version 2)
Quarter: 2019Q4

REPORT INFORMATION
  Report Type: Report from Study
  Country: FR (occurrence: FR)
  Receive Date: 20191022
  Receipt Date: 20191025
  Transmission Date: 20200122
  Serious: Yes (Death, Hospitalization, Other)
  Sender: FDA-Public Use
  Company Number: FR-JAZZ-2019-FR-014500

PATIENT
  Sex: Male
  Weight: 80 kg

DRUGS (4)
  1. ATRACURIUM [Suspect]
     Active Substance: ATRACURIUM
     Indication: PRODUCT USED FOR UNKNOWN INDICATION
  2. CYCLOPHOSPHAMIDE. [Suspect]
     Active Substance: CYCLOPHOSPHAMIDE
     Indication: PRODUCT USED FOR UNKNOWN INDICATION
  3. DEFITELIO [Suspect]
     Active Substance: DEFIBROTIDE SODIUM
     Indication: VENOOCCLUSIVE DISEASE
     Dosage: 25 MG/KG/DAY
     Route: 065
     Dates: start: 20180615, end: 20180704
  4. ZAVICEFTA [Suspect]
     Active Substance: AVIBACTAM SODIUM\CEFTAZIDIME
     Indication: PRODUCT USED FOR UNKNOWN INDICATION

REACTIONS (13)
  - Multiple organ dysfunction syndrome [Fatal]
  - Atrial fibrillation [Unknown]
  - Acute pulmonary oedema [Fatal]
  - Anaphylactic shock [Unknown]
  - Clostridium difficile colitis [Fatal]
  - Fungaemia [Fatal]
  - Encephalopathy [Fatal]
  - Immunodeficiency [Unknown]
  - Cardiotoxicity [Fatal]
  - Bacteraemia [Fatal]
  - Splenic candidiasis [Fatal]
  - Pneumonia [Fatal]
  - Cystitis haemorrhagic [Unknown]

NARRATIVE: CASE EVENT DATE: 20180707
